FAERS Safety Report 17799474 (Version 4)
Quarter: 2020Q2

REPORT INFORMATION
  Report Type: Report from Study
  Country: US (occurrence: US)
  Receive Date: 20200518
  Receipt Date: 20200612
  Transmission Date: 20200714
  Serious: Yes (Other)
  Sender: FDA-Public Use
  Company Number: NVSC2020US132509

PATIENT
  Sex: Female

DRUGS (1)
  1. ENTRESTO [Suspect]
     Active Substance: SACUBITRIL\VALSARTAN
     Indication: PRODUCT USED FOR UNKNOWN INDICATION
     Dosage: 100 MG, BID (49/51 MG)
     Route: 048

REACTIONS (7)
  - Gait disturbance [Unknown]
  - Exercise tolerance decreased [Unknown]
  - Cardiac failure congestive [Unknown]
  - Ventricular dyssynchrony [Unknown]
  - Throat clearing [Not Recovered/Not Resolved]
  - Asthenia [Unknown]
  - Condition aggravated [Unknown]
